FAERS Safety Report 20529857 (Version 1)
Quarter: 2022Q1

REPORT INFORMATION
  Report Type: Other
  Country: CA (occurrence: CA)
  Receive Date: 20220301
  Receipt Date: 20220301
  Transmission Date: 20220423
  Serious: Yes (Other)
  Sender: FDA-Public Use
  Company Number: CA-002147023-NVSC2020CA311848

PATIENT
  Age: 29 Year
  Sex: Female

DRUGS (4)
  1. XOLAIR [Suspect]
     Active Substance: OMALIZUMAB
     Indication: Chronic spontaneous urticaria
     Route: 058
  2. XOLAIR [Suspect]
     Active Substance: OMALIZUMAB
     Route: 058
     Dates: start: 20211203
  3. BILASTINE [Concomitant]
     Active Substance: BILASTINE
     Indication: Product used for unknown indication
     Dosage: UNK, QD
     Route: 048
  4. SYMBICORT [Concomitant]
     Active Substance: BUDESONIDE\FORMOTEROL FUMARATE DIHYDRATE
     Indication: Product used for unknown indication
     Dosage: UNK UG
     Route: 065

REACTIONS (5)
  - Urticaria [Unknown]
  - Anaphylactic reaction [Unknown]
  - Arthralgia [Unknown]
  - Rash [Unknown]
  - Headache [Unknown]

NARRATIVE: CASE EVENT DATE: 20211203
